FAERS Safety Report 21998896 (Version 1)
Quarter: 2023Q1

REPORT INFORMATION
  Report Type: Spontaneous
  Country: US (occurrence: None)
  Receive Date: 20230214
  Receipt Date: 20230214
  Transmission Date: 20230418
  Serious: Yes (Hospitalization)
  Sender: FDA-Public Use
  Company Number: None

PATIENT
  Age: 61 Year
  Sex: Female

DRUGS (1)
  1. SILDENAFIL CITRATE [Suspect]
     Active Substance: SILDENAFIL CITRATE
     Indication: Pulmonary arterial hypertension
     Dosage: 60MG 3 TIMES DAILY BY MOUTH
     Route: 048
     Dates: start: 202011

REACTIONS (3)
  - Pulmonary arterial hypertension [None]
  - Vascular device infection [None]
  - Disease complication [None]

NARRATIVE: CASE EVENT DATE: 20230211
